FAERS Safety Report 4928996-X (Version None)
Quarter: 2006Q1

REPORT INFORMATION
  Report Type: 
  Country: None (occurrence: None)
  Receive Date: 20060301
  Receipt Date: 20060223
  Transmission Date: 20060701
  Serious: Yes (Death)
  Sender: FDA-Public Use
  Company Number: 2006AP00935

PATIENT
  Age: 70 Year
  Sex: Female
  Weight: 53 kg

DRUGS (2)
  1. XYLOCAINE [Suspect]
     Dosage: STRENGTH AND DOSAGE USED UNKNOWN
  2. RAPIFEN [Concomitant]

REACTIONS (9)
  - ACCIDENTAL OVERDOSE [None]
  - CARDIAC ARREST [None]
  - FAT EMBOLISM [None]
  - LOSS OF CONSCIOUSNESS [None]
  - MYDRIASIS [None]
  - PAIN [None]
  - PULSE ABSENT [None]
  - RESPIRATORY FAILURE [None]
  - RESPIRATORY RATE DECREASED [None]
